FAERS Safety Report 4555894-6 (Version None)
Quarter: 2005Q1

REPORT INFORMATION
  Report Type: 
  Country: None (occurrence: None)
  Receive Date: 20050119
  Receipt Date: 20050111
  Transmission Date: 20050727
  Serious: Yes (Hospitalization)
  Sender: FDA-Public Use
  Company Number: PHNR2005AU00455

PATIENT
  Age: 26 Year
  Sex: Male

DRUGS (7)
  1. OMEPRAZOLE [Concomitant]
  2. PREDNISONE [Concomitant]
  3. ATENOLOL [Concomitant]
     Dosage: 50 MG, BID
  4. NIFEDIPINE [Concomitant]
     Dosage: 50 MG, QD
  5. FOLIC ACID [Concomitant]
  6. BACTRIM DS [Concomitant]
     Dosage: 2 DAYS PER WEEK
  7. NEORAL [Suspect]
     Indication: BONE MARROW TRANSPLANT
     Dosage: 75 MG MANE, 100 MG NOCTE

REACTIONS (2)
  - COORDINATION ABNORMAL [None]
  - LABYRINTHITIS [None]
